FAERS Safety Report 10977751 (Version 1)
Quarter: 2015Q1

REPORT INFORMATION
  Report Type: Spontaneous
  Country: JP (occurrence: None)
  Receive Date: 20150330
  Receipt Date: 20150330
  Transmission Date: 20150721
  Serious: Yes (Other)
  Sender: FDA-Public Use
  Company Number: JP-20150044

PATIENT
  Age: 77 Year
  Sex: Female

DRUGS (2)
  1. LIPIODOL ULTRA-FLUIDE [Suspect]
     Active Substance: ETHIODIZED OIL
     Indication: THERAPEUTIC EMBOLISATION
     Dosage: 1.5 ML (1.5 ML, 1 IN 1 D), INTRA-ARTERIAL
     Route: 013
     Dates: start: 201103, end: 201103
  2. FARMORUBICIN (EPIRUBICIN HYDROCHLORIDE) [Concomitant]

REACTIONS (4)
  - Abscess rupture [None]
  - Product use issue [None]
  - Hepatic infarction [None]
  - Peritonitis [None]

NARRATIVE: CASE EVENT DATE: 2011
